FAERS Safety Report 4285435-2 (Version None)
Quarter: 2004Q1

REPORT INFORMATION
  Report Type: 
  Country: None (occurrence: None)
  Receive Date: 20040202
  Receipt Date: 20040127
  Transmission Date: 20041129
  Serious: Yes (Hospitalization)
  Sender: FDA-Public Use
  Company Number: CAP03000251

PATIENT
  Age: 7 Year
  Sex: Male
  Weight: 19 kg

DRUGS (9)
  1. ASACOL [Suspect]
     Indication: INFLAMMATORY BOWEL DISEASE
     Dosage: 250 MG, TWICE DAILY
  2. MYCOPHENOLATE MOFETIL (MYCOPHENOLATE MOFETIL) [Concomitant]
  3. TACROLIMUS (TACROLIMUS) [Concomitant]
  4. DILTIAZEM [Concomitant]
  5. ENALAPRIL MALEATE [Concomitant]
  6. FLOVENT [Concomitant]
  7. SALBUTAMOL (SALBUTAMOL) [Concomitant]
  8. IRON (IRON) [Concomitant]
  9. ACETYLSALICYLIC ACID SRT [Concomitant]

REACTIONS (6)
  - PNEUMONIA [None]
  - SKIN DISCOLOURATION [None]
  - SKIN LESION [None]
  - TONGUE DISCOLOURATION [None]
  - TONGUE ULCERATION [None]
  - VARICELLA [None]
